FAERS Safety Report 9846033 (Version 2)
Quarter: 2014Q1

REPORT INFORMATION
  Report Type: Spontaneous
  Country: FR (occurrence: FR)
  Receive Date: 20140127
  Receipt Date: 20140221
  Transmission Date: 20141002
  Serious: Yes (Disabling, Other)
  Sender: FDA-Public Use
  Company Number: FR-INCYTE CORPORATION-2014IN000159

PATIENT
  Age: 73 Year
  Sex: Male

DRUGS (6)
  1. JAKAVI [Suspect]
     Indication: MYELOFIBROSIS
     Dosage: 5 MG, BID
     Route: 048
     Dates: start: 20131015, end: 20131112
  2. KENACORT [Suspect]
     Indication: LUNG INFECTION
     Dosage: UNK UNK, UNK
     Route: 065
  3. ARANESP [Concomitant]
  4. COLCHICINE [Concomitant]
     Dosage: UNK
  5. KARDEGIC [Concomitant]
     Dosage: 75 MG, UNK
  6. BLOOD CELLS, PACKED HUMAN [Concomitant]
     Dosage: UNK
     Dates: start: 20131008

REACTIONS (6)
  - Lung infection [Recovered/Resolved]
  - Pleural effusion [Recovering/Resolving]
  - Cardiac failure [Recovered/Resolved]
  - Cough [Not Recovered/Not Resolved]
  - Pyrexia [Unknown]
  - Oedema peripheral [Unknown]
